FAERS Safety Report 6871037-8 (Version None)
Quarter: 2010Q3

REPORT INFORMATION
  Report Type: 
  Country: None (occurrence: None)
  Receive Date: 20100723
  Receipt Date: 20100712
  Transmission Date: 20110219
  Serious: Yes (Hospitalization, Other)
  Sender: FDA-Public Use
  Company Number: US-PFIZER INC-2005033141

PATIENT
  Sex: Male
  Weight: 87.1 kg

DRUGS (5)
  1. DILANTIN [Suspect]
     Indication: GRAND MAL CONVULSION
     Dosage: UNK
     Route: 048
     Dates: start: 19810101
  2. CLARITIN-D [Suspect]
     Indication: SEASONAL ALLERGY
     Dosage: UNK
     Route: 048
     Dates: start: 20100501, end: 20100101
  3. CAFFEINE [Suspect]
     Dosage: UNK
     Dates: start: 20100526
  4. FLONASE [Concomitant]
     Indication: MULTIPLE ALLERGIES
     Dosage: UNK
     Route: 065
  5. TYLENOL [Concomitant]
     Dosage: UNK, AS NEEDED

REACTIONS (11)
  - DEPRESSED MOOD [None]
  - DIZZINESS [None]
  - FEELING ABNORMAL [None]
  - GRAND MAL CONVULSION [None]
  - HAEMORRHAGE [None]
  - INFLUENZA [None]
  - INSOMNIA [None]
  - NERVOUSNESS [None]
  - POLYDIPSIA [None]
  - SEASONAL ALLERGY [None]
  - STRESS [None]
